FAERS Safety Report 5577207-3 (Version None)
Quarter: 2007Q4

REPORT INFORMATION
  Report Type: 
  Country: None (occurrence: None)
  Receive Date: 20071228
  Receipt Date: 20071220
  Transmission Date: 20080405
  Serious: Yes (Hospitalization, Other)
  Sender: FDA-Public Use
  Company Number: PHBS2007JP08213

PATIENT
  Age: 94 Year
  Sex: Female
  Weight: 63 kg

DRUGS (7)
  1. ZOMETA [Suspect]
     Indication: METASTASES TO BONE
     Dosage: 4 MG, QMO
     Route: 042
     Dates: start: 20060801, end: 20070507
  2. FARESTON [Concomitant]
     Indication: BREAST CANCER
     Dosage: 40 MG, UNK
     Route: 048
  3. UFT [Concomitant]
     Indication: BREAST CANCER
     Dosage: 200 MG, UNK
     Route: 048
  4. CHOTO-SAN [Suspect]
     Indication: HYPERTENSION
     Dosage: 7.8 G, UNK
     Route: 048
     Dates: start: 20030101, end: 20070507
  5. NIVADIL [Concomitant]
     Indication: HYPERTENSION
     Dosage: 2 MG, UNK
     Route: 048
     Dates: start: 20030101
  6. STARSIS [Concomitant]
     Indication: HYPERLIPIDAEMIA
     Dosage: 270 MG, UNK
     Route: 048
     Dates: start: 20030101
  7. BUP-4 [Concomitant]
     Indication: DYSURIA
     Dosage: 10 MG, UNK
     Route: 048
     Dates: start: 20030101

REACTIONS (3)
  - ASTHENIA [None]
  - BLOOD CREATINE PHOSPHOKINASE INCREASED [None]
  - HYPOKALAEMIA [None]
